FAERS Safety Report 10741289 (Version 1)
Quarter: 2015Q1

REPORT INFORMATION
  Report Type: Report from Study
  Country: US (occurrence: None)
  Receive Date: 20150123
  Receipt Date: 20150123
  Transmission Date: 20150721
  Serious: Yes (Hospitalization)
  Sender: FDA-Public Use
  Company Number: 201501IM008651

PATIENT
  Age: 63 Year
  Sex: Female

DRUGS (1)
  1. ESBRIET [Suspect]
     Active Substance: PIRFENIDONE
     Indication: IDIOPATHIC PULMONARY FIBROSIS
     Dosage: 267 MG,  2 DOSES,  ORAL
     Route: 048
     Dates: start: 20150107

REACTIONS (6)
  - Hypersensitivity [None]
  - Infection [None]
  - Pyrexia [None]
  - Chills [None]
  - Chest pain [None]
  - Vomiting [None]

NARRATIVE: CASE EVENT DATE: 20150107
